FAERS Safety Report 5308766-3 (Version None)
Quarter: 2007Q2

REPORT INFORMATION
  Report Type: 
  Country: None (occurrence: None)
  Receive Date: 20070426
  Receipt Date: 20070416
  Transmission Date: 20071010
  Serious: Yes (Other)
  Sender: FDA-Public Use
  Company Number: PHNU2006DE04052

PATIENT
  Age: 47 Year
  Sex: Female
  Weight: 57 kg

DRUGS (1)
  1. ZELNORM [Suspect]
     Indication: IRRITABLE BOWEL SYNDROME
     Dosage: 12 MG/DAY
     Route: 048
     Dates: start: 20040101, end: 20061118

REACTIONS (5)
  - FATIGUE [None]
  - GRAND MAL CONVULSION [None]
  - INSOMNIA [None]
  - PARTIAL SEIZURES [None]
  - SYNCOPE [None]
